FAERS Safety Report 12803951 (Version 4)
Quarter: 2025Q3

REPORT INFORMATION
  Report Type: Report from Study
  Country: EU (occurrence: EU)
  Receive Date: 20161003
  Receipt Date: 20250813
  Transmission Date: 20251020
  Serious: Yes (Other)
  Sender: PFIZER
  Company Number: EU-MLMSERVICE-20160921-0431537-1

PATIENT
  Age: 12 Year
  Sex: Female

DRUGS (5)
  1. METHYLPREDNISOLONE [Suspect]
     Active Substance: METHYLPREDNISOLONE
     Indication: Immunosuppression
  2. MYCOPHENOLATE MOFETIL [Suspect]
     Active Substance: MYCOPHENOLATE MOFETIL
     Indication: Immunosuppression
  3. CYCLOSPORINE [Suspect]
     Active Substance: CYCLOSPORINE
     Indication: Immunosuppression
  4. RITUXIMAB [Suspect]
     Active Substance: RITUXIMAB
     Indication: Nephrotic syndrome
     Dosage: 375 MG/M2 ON WEEKLY BASIS; LIMITED THE NUMBER OF SCHEDULED RITUXIMAB DOSES TO 2
  5. RITUXIMAB [Suspect]
     Active Substance: RITUXIMAB
     Dosage: 375 MG/M2, 2X/DAY (ON DAY 21 POST TRANSPLANTATION)

REACTIONS (1)
  - Klebsiella infection [Unknown]
